FAERS Safety Report 7865432-8 (Version None)
Quarter: 2011Q4

REPORT INFORMATION
  Report Type: 
  Country: None (occurrence: None)
  Receive Date: 20111028
  Receipt Date: 20101223
  Transmission Date: 20120403
  Serious: No
  Sender: FDA-Public Use
  Company Number: US-GLAXOSMITHKLINE-A0901438A

PATIENT
  Age: 63 Year
  Sex: Female

DRUGS (4)
  1. ADVAIR DISKUS 100/50 [Suspect]
     Indication: BRONCHITIS
     Dosage: 1PUFF SINGLE DOSE
     Route: 055
     Dates: start: 20101221, end: 20101221
  2. COREG [Concomitant]
  3. BLOOD PRESSURE MEDICATION [Concomitant]
  4. ASPIRIN [Concomitant]

REACTIONS (1)
  - CHEST DISCOMFORT [None]
